FAERS Safety Report 10586991 (Version 6)
Quarter: 2015Q1

REPORT INFORMATION
  Report Type: Report from Study
  Country: JP (occurrence: JP)
  Receive Date: 20141117
  Receipt Date: 20150127
  Transmission Date: 20150720
  Serious: Yes (Death, Life-Threatening, Other)
  Sender: FDA-Public Use
  Company Number: PHHY2014JP107932

PATIENT
  Age: 43 Year
  Sex: Female
  Weight: 60 kg

DRUGS (33)
  1. LINTON [Concomitant]
     Active Substance: HALOPERIDOL
     Dosage: 6 MG, UNK
     Route: 048
  2. DEPAKENE [Concomitant]
     Active Substance: VALPROIC ACID
     Dosage: 400 MG, UNK
     Route: 048
     Dates: end: 20140109
  3. CLOZARIL [Suspect]
     Active Substance: CLOZAPINE
     Dosage: 300 MG, UNK
     Dates: start: 20130617, end: 20130620
  4. CLOZARIL [Suspect]
     Active Substance: CLOZAPINE
     Dosage: 400 MG, UNK
     Route: 048
     Dates: start: 20130809, end: 20130822
  5. CLOZARIL [Suspect]
     Active Substance: CLOZAPINE
     Dosage: 300 MG, UNK
     Route: 048
     Dates: start: 20140327
  6. LINTON [Concomitant]
     Active Substance: HALOPERIDOL
     Dosage: 12 MG, UNK
     Route: 048
  7. INVEGA [Concomitant]
     Active Substance: PALIPERIDONE
     Indication: SCHIZOPHRENIA, PARANOID TYPE
     Dosage: 12 MG, UNK
     Route: 048
     Dates: start: 20130417
  8. INVEGA [Concomitant]
     Active Substance: PALIPERIDONE
     Dosage: 9 MG, UNK
     Route: 048
  9. CLOZARIL [Suspect]
     Active Substance: CLOZAPINE
     Dosage: 50 MG, UNK
     Route: 048
     Dates: start: 20130527, end: 20130529
  10. CLOZARIL [Suspect]
     Active Substance: CLOZAPINE
     Dosage: 450 MG, UNK
     Dates: start: 20130712, end: 20130808
  11. CLOZARIL [Suspect]
     Active Substance: CLOZAPINE
     Dosage: 300 MG, UNK
     Route: 048
     Dates: start: 20131025, end: 20140109
  12. CLOZARIL [Suspect]
     Active Substance: CLOZAPINE
     Dosage: 600 MG, UNK
     Route: 048
  13. DEPAKENE [Concomitant]
     Active Substance: VALPROIC ACID
     Indication: SCHIZOPHRENIA, PARANOID TYPE
     Dosage: 600 MG, UNK
     Route: 048
     Dates: start: 20130417
  14. PANTOSIN [Concomitant]
     Active Substance: PANTETHINE
     Indication: SCHIZOPHRENIA, PARANOID TYPE
     Dosage: 600 MG, UNK
     Route: 048
     Dates: start: 20130417, end: 20140609
  15. CLOZARIL [Suspect]
     Active Substance: CLOZAPINE
     Indication: SCHIZOPHRENIA, PARANOID TYPE
     Dosage: 25 MG, UNK
     Route: 048
     Dates: start: 20130524, end: 20130526
  16. CLOZARIL [Suspect]
     Active Substance: CLOZAPINE
     Dosage: 75 MG, UNK
     Route: 048
     Dates: start: 20130530, end: 20130531
  17. CLOZARIL [Suspect]
     Active Substance: CLOZAPINE
     Dosage: 125 MG, UNK
     Route: 048
     Dates: start: 20130603, end: 20130605
  18. LINTON [Concomitant]
     Active Substance: HALOPERIDOL
     Dosage: 9 MG, UNK
     Route: 048
  19. PRIMPERAN [Concomitant]
     Active Substance: METOCLOPRAMIDE HYDROCHLORIDE
     Indication: SCHIZOPHRENIA, PARANOID TYPE
     Dosage: 30 MG, UNK
     Route: 048
     Dates: start: 20130417, end: 20140609
  20. CLOZARIL [Suspect]
     Active Substance: CLOZAPINE
     Dosage: 150 MG, UNK
     Route: 048
     Dates: start: 20130606, end: 20130608
  21. ABILIFY [Concomitant]
     Active Substance: ARIPIPRAZOLE
     Indication: SCHIZOPHRENIA, PARANOID TYPE
     Dosage: 30 MG, UNK
     Route: 048
     Dates: start: 20130417, end: 20130508
  22. CLOZARIL [Suspect]
     Active Substance: CLOZAPINE
     Dosage: 200 MG, UNK
     Route: 048
     Dates: start: 20130612, end: 20130616
  23. CLOZARIL [Suspect]
     Active Substance: CLOZAPINE
     Dosage: 350 MG, UNK
     Route: 048
     Dates: start: 20130823, end: 20131024
  24. LINTON [Concomitant]
     Active Substance: HALOPERIDOL
     Dosage: 3 MG, UNK
     Route: 048
  25. MAGLAX [Concomitant]
     Active Substance: MAGNESIUM OXIDE
     Indication: SCHIZOPHRENIA, PARANOID TYPE
     Dosage: 1500 MG, UNK
     Route: 048
     Dates: start: 20130417, end: 20130620
  26. CLOZARIL [Suspect]
     Active Substance: CLOZAPINE
     Dosage: 175 MG, UNK
     Route: 048
     Dates: start: 20130609, end: 20130611
  27. CLOZARIL [Suspect]
     Active Substance: CLOZAPINE
     Dosage: 400 MG, UNK
     Route: 048
     Dates: start: 20130621, end: 20130624
  28. CLOZARIL [Suspect]
     Active Substance: CLOZAPINE
     Route: 048
     Dates: start: 20140327
  29. LINTON [Concomitant]
     Active Substance: HALOPERIDOL
     Indication: SCHIZOPHRENIA, PARANOID TYPE
     Dosage: 15 MG, UNK
     Route: 048
  30. INVEGA [Concomitant]
     Active Substance: PALIPERIDONE
     Dosage: 6 MG, UNK
     Route: 048
  31. CLOZARIL [Suspect]
     Active Substance: CLOZAPINE
     Indication: SCHIZOPHRENIA
     Dosage: 12.5 MG, UNK
     Route: 048
     Dates: start: 20130523, end: 20130523
  32. CLOZARIL [Suspect]
     Active Substance: CLOZAPINE
     Dosage: 100 MG, UNK
     Route: 048
     Dates: start: 20130601, end: 20130602
  33. INVEGA [Concomitant]
     Active Substance: PALIPERIDONE
     Dosage: 3 MG, UNK
     Route: 048

REACTIONS (9)
  - Acute kidney injury [Fatal]
  - Status epilepticus [Fatal]
  - Blood glucose increased [Unknown]
  - Electrolyte imbalance [Fatal]
  - Weight increased [Not Recovered/Not Resolved]
  - Thirst [Unknown]
  - Salivary hypersecretion [Unknown]
  - Glucose tolerance impaired [Unknown]
  - Polydipsia [Unknown]

NARRATIVE: CASE EVENT DATE: 20130606
